FAERS Safety Report 9627774 (Version 2)
Quarter: 2013Q4

REPORT INFORMATION
  Report Type: Spontaneous
  Country: DK (occurrence: FR)
  Receive Date: 20131016
  Receipt Date: 20131206
  Transmission Date: 20140711
  Serious: Yes (Death)
  Sender: FDA-Public Use
  Company Number: FR-FRI-1000050115

PATIENT
  Age: 31 Year
  Sex: Male

DRUGS (4)
  1. ESCITALOPRAM [Suspect]
     Dosage: 1 DF
     Route: 048
     Dates: start: 201205, end: 20130719
  2. BACLOFENE ZENTIVA [Suspect]
     Dosage: PROGRESSIVE TITRATION TO 60 MG DAILY
     Route: 048
     Dates: start: 20130408, end: 20130719
  3. DIAZEPAM RATIOPHARM [Suspect]
     Dosage: 3 DF
     Route: 048
     Dates: start: 201301, end: 20130719
  4. ZOPICLONE [Concomitant]

REACTIONS (2)
  - Suicidal behaviour [Fatal]
  - Completed suicide [Fatal]
